FAERS Safety Report 4734911-4 (Version None)
Quarter: 2005Q3

REPORT INFORMATION
  Report Type: 
  Country: None (occurrence: None)
  Receive Date: 20050804
  Receipt Date: 20050727
  Transmission Date: 20060218
  Serious: Yes (Other)
  Sender: FDA-Public Use
  Company Number: 2005UW11220

PATIENT

DRUGS (3)
  1. CRESTOR [Suspect]
     Route: 048
  2. NEUROLEPTIC [Suspect]
  3. MULTIPLE UNSPECIFIED MEDICATIONS [Concomitant]

REACTIONS (2)
  - NEUROLEPTIC MALIGNANT SYNDROME [None]
  - SEPTIC SHOCK [None]
